FAERS Safety Report 23224957 (Version 1)
Quarter: 2023Q4

REPORT INFORMATION
  Report Type: Spontaneous
  Country: GB (occurrence: None)
  Receive Date: 20231124
  Receipt Date: 20231124
  Transmission Date: 20240110
  Serious: Yes (Other)
  Sender: FDA-Public Use
  Company Number: GB-Unichem Pharmaceuticals (USA) Inc-UCM202311-001440

PATIENT
  Age: 5 Month
  Sex: Female

DRUGS (8)
  1. ALLOPURINOL [Suspect]
     Active Substance: ALLOPURINOL
     Indication: Leukaemia
     Dosage: UNKNOWN
  2. ALLOPURINOL [Suspect]
     Active Substance: ALLOPURINOL
     Indication: Blood uric acid increased
  3. Hydroxycoalbumin [Concomitant]
     Indication: Vitamin B12 deficiency
     Dosage: UNKNOWN
     Route: 030
  4. Hydroxycoalbumin [Concomitant]
     Dosage: UNKNOWN
     Route: 030
  5. Hydroxycoalbumin [Concomitant]
     Dosage: UNKNOWN
     Route: 030
  6. FOLATE SODIUM [Concomitant]
     Active Substance: FOLATE SODIUM
     Indication: Vitamin B12 deficiency
     Dosage: UNKNOWN
     Route: 048
  7. BIOTIN [Concomitant]
     Active Substance: BIOTIN
     Indication: Vitamin B12 deficiency
     Dosage: UNKNOWN
  8. BIOTIN [Concomitant]
     Active Substance: BIOTIN
     Dosage: UNKNOWN
     Route: 048

REACTIONS (1)
  - Oroticaciduria [Recovered/Resolved]
